FAERS Safety Report 7898951 (Version 2)
Quarter: 2013Q4

REPORT INFORMATION
  Report Type: Spontaneous
  Country: GB (occurrence: None)
  Receive Date: 20110323
  Receipt Date: 20131119
  Transmission Date: 20140711
  Serious: Yes (Hospitalization, Other)
  Sender: FDA-Public Use
  Company Number: 20110197

PATIENT
  Age: 66 Year
  Sex: Female
  Weight: 74 kg

DRUGS (13)
  1. METHYLENE BLUE [Suspect]
     Indication: PARATHYROID DISORDER
     Dosage: 370  MG/500 ML5% GLUCOSE (5MG/KG), INTRAVENOUS DRIP
     Route: 041
  2. FENTANYL [Concomitant]
  3. ISOFLURANE [Concomitant]
  4. PROPOFOL [Concomitant]
  5. VECURONIUM BROMIDE [Concomitant]
  6. DEXTROSE [Concomitant]
  7. CLOMIPRAMINE [Suspect]
     Dosage: 50MG NIGHTLY.
  8. DOLAGESTRON [Concomitant]
  9. NITROUS OXIDE [Concomitant]
  10. NORMAL SALINE [Concomitant]
  11. NEOSTIGMINE [Concomitant]
  12. GLYCOPYRROLOATE [Concomitant]
  13. ALVERINE CITRATE [Concomitant]

REACTIONS (5)
  - Mental status changes postoperative [None]
  - Confusional state [None]
  - Agitation [None]
  - Dyskinesia [None]
  - Off label use [None]
